FAERS Safety Report 6004213-7 (Version None)
Quarter: 2008Q4

REPORT INFORMATION
  Report Type: 
  Country: None (occurrence: None)
  Receive Date: 20081216
  Receipt Date: 20081208
  Transmission Date: 20090506
  Serious: Yes (Other)
  Sender: FDA-Public Use
  Company Number: US-BIOGENIDEC-2008BI019989

PATIENT
  Age: 52 Year
  Sex: Female

DRUGS (1)
  1. AVONEX [Suspect]
     Indication: MULTIPLE SCLEROSIS
     Route: 030
     Dates: start: 20050803, end: 20081117

REACTIONS (4)
  - ASTHENIA [None]
  - MUSCULAR WEAKNESS [None]
  - PULMONARY THROMBOSIS [None]
  - THROMBOSIS [None]
